FAERS Safety Report 6891531-3 (Version None)
Quarter: 2010Q3

REPORT INFORMATION
  Report Type: 
  Country: None (occurrence: None)
  Receive Date: 20100731
  Receipt Date: 20070921
  Transmission Date: 20110219
  Serious: No
  Sender: FDA-Public Use
  Company Number: US-PFIZER INC-2007043786

PATIENT
  Sex: Male
  Weight: 84 kg

DRUGS (4)
  1. CAVERJECT [Suspect]
     Indication: ERECTILE DYSFUNCTION
     Dates: start: 20070401
  2. VIAGRA [Suspect]
     Indication: ERECTILE DYSFUNCTION
     Dates: start: 20060101, end: 20070101
  3. CIALIS [Suspect]
     Indication: ERECTILE DYSFUNCTION
     Dates: start: 20060101, end: 20060101
  4. VITAMINS [Concomitant]

REACTIONS (16)
  - ABSCESS [None]
  - BACK PAIN [None]
  - DISCOMFORT [None]
  - DRUG ADMINISTRATION ERROR [None]
  - DRUG INEFFECTIVE [None]
  - INJECTION SITE HAEMATOMA [None]
  - INSOMNIA [None]
  - MUSCULOSKELETAL PAIN [None]
  - NECK PAIN [None]
  - PAIN [None]
  - PENILE PAIN [None]
  - PENIS DISORDER [None]
  - PROSTATIC DISORDER [None]
  - SENSATION OF PRESSURE [None]
  - SEXUAL DYSFUNCTION [None]
  - TOOTH DISORDER [None]
